FAERS Safety Report 19458200 (Version 1)
Quarter: 2021Q2

REPORT INFORMATION
  Report Type: Report from Study
  Country: PL (occurrence: PL)
  Receive Date: 20210624
  Receipt Date: 20210624
  Transmission Date: 20210717
  Serious: Yes (Hospitalization)
  Sender: FDA-Public Use
  Company Number: PL-JNJFOC-20210643968

PATIENT
  Age: 52 Year
  Sex: Male
  Weight: 55 kg

DRUGS (9)
  1. VENTOLIN [Concomitant]
     Active Substance: ALBUTEROL SULFATE
     Dates: start: 2000
  2. BUDESONIDE;FORMOTEROL FUMARATE [Concomitant]
     Active Substance: BUDESONIDE\FORMOTEROL FUMARATE
     Dates: start: 20200315, end: 20200331
  3. TRAUMON [Concomitant]
     Active Substance: ETOFENAMATE
     Dates: start: 20190821, end: 20190904
  4. ATRODIL [Concomitant]
     Dates: start: 20200401
  5. PENTASA [Concomitant]
     Active Substance: MESALAMINE
     Indication: CROHN^S DISEASE
     Dates: start: 2010
  6. USTEKINUMAB [Suspect]
     Active Substance: USTEKINUMAB
     Indication: CROHN^S DISEASE
     Route: 058
     Dates: start: 20190710, end: 20200729
  7. ADALIMUMAB [Suspect]
     Active Substance: ADALIMUMAB
     Indication: CROHN^S DISEASE
     Route: 058
  8. ATRODIL [Concomitant]
     Dates: start: 2000, end: 20200314
  9. FOSTEX [BENZOYL PEROXIDE] [Concomitant]
     Active Substance: BENZOYL PEROXIDE
     Dates: start: 20200401

REACTIONS (1)
  - Intestinal stenosis [Recovered/Resolved]

NARRATIVE: CASE EVENT DATE: 20200826
